FAERS Safety Report 8976980 (Version 1)
Quarter: 2012Q4

REPORT INFORMATION
  Report Type: 
  Country: US (occurrence: US)
  Receive Date: 20121220
  Receipt Date: 20121220
  Transmission Date: 20130627
  Serious: Yes (Other)
  Sender: FDA-Public Use
  Company Number: US-GLAXOSMITHKLINE-A0968824A

PATIENT
  Sex: Female

DRUGS (5)
  1. SORIATANE [Suspect]
     Indication: PSORIASIS
     Dosage: 25MG Per day
     Route: 048
     Dates: start: 20120220
  2. LISINOPRIL [Concomitant]
  3. PROCARDIA [Concomitant]
  4. ZOCOR [Concomitant]
  5. ESTRACE [Concomitant]

REACTIONS (5)
  - Psoriasis [Unknown]
  - Dry eye [Unknown]
  - Chapped lips [Unknown]
  - Erythema [Unknown]
  - Swelling [Unknown]
